FAERS Safety Report 14397899 (Version 2)
Quarter: 2018Q1

REPORT INFORMATION
  Report Type: Report from Study
  Country: US (occurrence: US)
  Receive Date: 20180116
  Receipt Date: 20180202
  Transmission Date: 20180509
  Serious: Yes (Hospitalization)
  Sender: FDA-Public Use
  Company Number: US-ACTELION-A-US2014-109371

PATIENT
  Age: 67 Year
  Sex: Female
  Weight: 74.38 kg

DRUGS (9)
  1. VENTAVIS [Suspect]
     Active Substance: ILOPROST
     Indication: PULMONARY ARTERIAL HYPERTENSION
     Dosage: 5 MCG, 6-9X/DAY
     Route: 055
     Dates: start: 20140818
  2. ADEMPAS [Concomitant]
     Active Substance: RIOCIGUAT
  3. OPSUMIT [Suspect]
     Active Substance: MACITENTAN
     Indication: PULMONARY ARTERIAL HYPERTENSION
     Dosage: 10 MG, QD
     Route: 048
     Dates: start: 20140421
  4. ADCIRCA [Concomitant]
     Active Substance: TADALAFIL
  5. BUMETANIDE. [Concomitant]
     Active Substance: BUMETANIDE
  6. VENTAVIS [Suspect]
     Active Substance: ILOPROST
     Dosage: 5 MCG, 6-9 X/DAY
     Route: 055
  7. OPSUMIT [Suspect]
     Active Substance: MACITENTAN
     Dosage: UNK
     Route: 048
  8. WARFARIN [Concomitant]
     Active Substance: WARFARIN
  9. AMLODIPINE [Concomitant]
     Active Substance: AMLODIPINE BESYLATE

REACTIONS (15)
  - Dyspnoea [Recovering/Resolving]
  - Dyspnoea exertional [Unknown]
  - Nasopharyngitis [Unknown]
  - Fatigue [Unknown]
  - Pollakiuria [Unknown]
  - Cough [Unknown]
  - Drug dose omission [Unknown]
  - Pneumonia bacterial [Recovered/Resolved]
  - Epistaxis [Unknown]
  - Upper respiratory tract infection [Recovered/Resolved]
  - Diarrhoea [Unknown]
  - Oedema peripheral [Unknown]
  - Somnolence [Unknown]
  - Headache [Unknown]
  - Malaise [Unknown]
